FAERS Safety Report 15798182 (Version 1)
Quarter: 2019Q1

REPORT INFORMATION
  Report Type: Report from Study
  Country: TW (occurrence: TW)
  Receive Date: 20190108
  Receipt Date: 20190108
  Transmission Date: 20190417
  Serious: Yes (Other)
  Sender: FDA-Public Use
  Company Number: TW-MYLANLABS-2019M1000372

PATIENT
  Age: 66 Year
  Sex: Female

DRUGS (6)
  1. CYTARABINE. [Suspect]
     Active Substance: CYTARABINE
     Indication: LYMPHOMA
     Dosage: AS A PART OF R-ESHAP REGIMEN; HIGH DOSE
     Route: 065
  2. PLATINOL [Suspect]
     Active Substance: CISPLATIN
     Indication: LYMPHOMA
     Dosage: AS A PART OF R-ESHAP REGIMEN
     Route: 065
  3. ETOPOSIDE. [Suspect]
     Active Substance: ETOPOSIDE
     Indication: LYMPHOMA
     Dosage: AS A PART OF R-ESHAP REGIMEN
     Route: 065
  4. BARACLUDE [Suspect]
     Active Substance: ENTECAVIR
     Indication: ANTIVIRAL PROPHYLAXIS
     Route: 065
  5. SOLU-MEDROL [Suspect]
     Active Substance: METHYLPREDNISOLONE SODIUM SUCCINATE
     Indication: LYMPHOMA
     Dosage: AS A PART OF R-ESHAP REGIMEN
     Route: 065
  6. RITUXIMAB. [Suspect]
     Active Substance: RITUXIMAB
     Indication: LYMPHOMA
     Dosage: AS A PART OF R-ESHAP REGIMEN
     Route: 065

REACTIONS (1)
  - Acute kidney injury [Recovered/Resolved]
